FAERS Safety Report 25525342 (Version 1)
Quarter: 2025Q3

REPORT INFORMATION
  Report Type: Spontaneous
  Country: BR (occurrence: BR)
  Receive Date: 20250707
  Receipt Date: 20250707
  Transmission Date: 20251021
  Serious: Yes (Hospitalization)
  Sender: BAYER HEALTHCARE PHARMACEUTICALS INC.
  Company Number: BR-BAYER-2025A087300

PATIENT
  Age: 83 Year
  Sex: Male

DRUGS (5)
  1. NUBEQA [Suspect]
     Active Substance: DAROLUTAMIDE
  2. SIMVASTATIN [Concomitant]
     Active Substance: SIMVASTATIN
  3. LOSARTAN POTASSIUM [Concomitant]
     Active Substance: LOSARTAN POTASSIUM
     Indication: Product used for unknown indication
  4. LUVOX [Concomitant]
     Active Substance: FLUVOXAMINE MALEATE
     Indication: Product used for unknown indication
  5. METFORMIN HYDROCHLORIDE [Concomitant]
     Active Substance: METFORMIN HYDROCHLORIDE
     Indication: Product used for unknown indication

REACTIONS (1)
  - Rectal neoplasm excision [Recovering/Resolving]

NARRATIVE: CASE EVENT DATE: 20250626
